FAERS Safety Report 8606044-8 (Version None)
Quarter: 2012Q3

REPORT INFORMATION
  Report Type: 
  Country: None (occurrence: None)
  Receive Date: 20120809
  Receipt Date: 20120809
  Transmission Date: 20120928
  Serious: Yes (Life-Threatening, Hospitalization)
  Sender: FDA-Public Use
  Company Number: None

PATIENT
  Age: 63 Year
  Sex: Male
  Weight: 113.5 kg

DRUGS (1)
  1. WARFARIN SODIUM [Suspect]
     Dosage: EVERY DAY PO
     Route: 048
     Dates: start: 20071219, end: 20120731

REACTIONS (1)
  - GASTRIC HAEMORRHAGE [None]
